FAERS Safety Report 9302718 (Version 1)
Quarter: 2013Q2

REPORT INFORMATION
  Report Type: Report from Study
  Country: CA (occurrence: CA)
  Receive Date: 20130522
  Receipt Date: 20130522
  Transmission Date: 20140414
  Serious: Yes (Other)
  Sender: FDA-Public Use
  Company Number: PHHY2013CA049862

PATIENT
  Age: 59 Year
  Sex: Female

DRUGS (1)
  1. SANDOSTATIN LAR [Suspect]
     Indication: NEUROENDOCRINE TUMOUR
     Dosage: 30 MG, PER 28 DAYS
     Route: 030
     Dates: start: 20110615

REACTIONS (3)
  - Ovarian neoplasm [Unknown]
  - Second primary malignancy [Unknown]
  - Flushing [Unknown]
